FAERS Safety Report 7268790-0 (Version None)
Quarter: 2011Q1

REPORT INFORMATION
  Report Type: 
  Country: None (occurrence: None)
  Receive Date: 20110201
  Receipt Date: 20110131
  Transmission Date: 20110831
  Serious: Yes (Death)
  Sender: FDA-Public Use
  Company Number: PHHY2011US07291

PATIENT
  Sex: Female

DRUGS (1)
  1. EXJADE [Suspect]
     Indication: BLOOD DISORDER
     Dosage: 1500 MG, UNK
     Route: 048
     Dates: start: 20101123

REACTIONS (1)
  - DEATH [None]
